FAERS Safety Report 14554369 (Version 4)
Quarter: 2018Q2

REPORT INFORMATION
  Report Type: Report from Study
  Country: PL (occurrence: PL)
  Receive Date: 20180220
  Receipt Date: 20180510
  Transmission Date: 20180711
  Serious: Yes (Death, Hospitalization)
  Sender: FDA-Public Use
  Company Number: PL-AMGEN-POLCT2018017074

PATIENT
  Age: 79 Year
  Sex: Male

DRUGS (15)
  1. PAMIDRONAT MEDAC [Concomitant]
     Dosage: 4 MG, UNK
     Route: 042
     Dates: start: 20131024, end: 20180217
  2. KLACID [Concomitant]
     Active Substance: CLARITHROMYCIN
     Dosage: 500 MG, UNK
     Route: 048
     Dates: start: 20180102, end: 20180107
  3. HYDROCHLOROTHIAZIDE. [Concomitant]
     Active Substance: HYDROCHLOROTHIAZIDE
     Dosage: 12.5 MG, UNK
     Route: 048
     Dates: start: 20131011, end: 20180217
  4. ACARD [Concomitant]
     Active Substance: ASPIRIN
     Dosage: 75 MG, UNK
     Route: 048
     Dates: start: 20131011, end: 20180217
  5. VIVACOR [Concomitant]
     Active Substance: BISOPROLOL FUMARATE
     Dosage: 6.25 MG, UNK
     Route: 048
     Dates: start: 1996, end: 20180217
  6. HEVIRAN [Concomitant]
     Active Substance: ACYCLOVIR
     Dosage: 400 MG, UNK
     Route: 048
     Dates: start: 20150901, end: 20180217
  7. PRESTARIUM [Concomitant]
     Active Substance: PERINDOPRIL
     Dosage: 2.5 MG, UNK
     Route: 048
     Dates: start: 1996, end: 20180217
  8. ALLUPOL [Concomitant]
     Active Substance: ALLOPURINOL
     Dosage: 100 MG, UNK
     Route: 048
     Dates: start: 20151001, end: 20180217
  9. NEUROLIPON [Concomitant]
     Dosage: 600 MG, UNK
     Route: 048
     Dates: start: 201506, end: 20180217
  10. GABAPENTIN. [Concomitant]
     Active Substance: GABAPENTIN
     Dosage: 300 MG, UNK
     Route: 048
     Dates: start: 201506, end: 20180217
  11. CONTROLOC [Concomitant]
     Active Substance: PANTOPRAZOLE SODIUM
     Dosage: 40 MG, UNK
     Route: 048
     Dates: start: 20131009, end: 20180217
  12. CARDURA [Concomitant]
     Active Substance: DOXAZOSIN MESYLATE
     Dosage: 4 MG, UNK
     Route: 048
     Dates: start: 20131011, end: 20180217
  13. CARFILZOMIB [Suspect]
     Active Substance: CARFILZOMIB
     Indication: PLASMA CELL MYELOMA
     Dosage: 51 MG, PER CHEMO REGIM
     Route: 042
     Dates: start: 20160621, end: 20180117
  14. DEXAMETHASONE. [Suspect]
     Active Substance: DEXAMETHASONE
     Indication: PLASMA CELL MYELOMA
     Dosage: 40 MG, PER CHEMO REGIM
     Route: 048
     Dates: start: 20160621, end: 20180116
  15. AMLOZEK [Concomitant]
     Active Substance: AMLODIPINE BESYLATE
     Dosage: 5 MG, UNK
     Route: 048
     Dates: start: 1996, end: 20180217

REACTIONS (1)
  - Pneumonia [Fatal]

NARRATIVE: CASE EVENT DATE: 20180127
